FAERS Safety Report 7530447-6 (Version None)
Quarter: 2011Q2

REPORT INFORMATION
  Report Type: 
  Country: None (occurrence: None)
  Receive Date: 20110607
  Receipt Date: 20110606
  Transmission Date: 20111010
  Serious: Yes (Other)
  Sender: FDA-Public Use
  Company Number: CHPA2011US07563

PATIENT
  Age: 54 Year
  Sex: Female
  Weight: 62.585 kg

DRUGS (5)
  1. INHALATION THERAPY [Concomitant]
  2. PROZAC [Concomitant]
  3. MULTI-VITAMINS [Concomitant]
     Route: 048
  4. NICOTINE [Suspect]
     Indication: SMOKING CESSATION THERAPY
     Dosage: 21 MG, QD
     Route: 062
     Dates: start: 20110527, end: 20110606
  5. ZOLOFT [Concomitant]
     Route: 048

REACTIONS (6)
  - OVERDOSE [None]
  - APPLICATION SITE PRURITUS [None]
  - CONTUSION [None]
  - APPLICATION SITE ERYTHEMA [None]
  - FALL [None]
  - HYPERSENSITIVITY [None]
